FAERS Safety Report 18931050 (Version 1)
Quarter: 2021Q1

REPORT INFORMATION
  Report Type: Spontaneous
  Country: CA (occurrence: CA)
  Receive Date: 20210224
  Receipt Date: 20210224
  Transmission Date: 20210420
  Serious: Yes (Life-Threatening, Other)
  Sender: FDA-Public Use
  Company Number: CA-TEVA-2021-CA-1881364

PATIENT
  Age: 8 Month
  Sex: Female
  Weight: 7 kg

DRUGS (13)
  1. CYTARABINE INJECTION [Suspect]
     Active Substance: CYTARABINE
     Indication: ACUTE MYELOID LEUKAEMIA
     Route: 042
  2. METOCLOPRAMIDE. [Concomitant]
     Active Substance: METOCLOPRAMIDE
  3. ONDANSETRON [Concomitant]
     Active Substance: ONDANSETRON
  4. CHOLECALCIFEROL [Concomitant]
     Active Substance: CHOLECALCIFEROL
  5. FUROSEMIDE. [Concomitant]
     Active Substance: FUROSEMIDE
  6. DAUNORUBICIN HYDROCHLORIDE FOR INJECTION [Suspect]
     Active Substance: DAUNORUBICIN HYDROCHLORIDE
     Indication: ACUTE MYELOID LEUKAEMIA
     Route: 042
  7. ALLOPURINOL. [Concomitant]
     Active Substance: ALLOPURINOL
  8. POTASSIUM [Concomitant]
     Active Substance: POTASSIUM
  9. ZINECARD [Concomitant]
     Active Substance: DEXRAZOXANE HYDROCHLORIDE
  10. FASTURTEC [Concomitant]
     Active Substance: RASBURICASE
  11. MYCAMINE [Concomitant]
     Active Substance: MICAFUNGIN SODIUM
  12. ETOPOSIDE. [Suspect]
     Active Substance: ETOPOSIDE
     Indication: ACUTE MYELOID LEUKAEMIA
     Route: 042
  13. CEFAZOLIN [Concomitant]
     Active Substance: CEFAZOLIN

REACTIONS (1)
  - Aplastic anaemia [Recovered/Resolved]
